FAERS Safety Report 21239124 (Version 6)
Quarter: 2024Q1

REPORT INFORMATION
  Report Type: Report from Study
  Country: AT (occurrence: AT)
  Receive Date: 20220822
  Receipt Date: 20240305
  Transmission Date: 20240410
  Serious: Yes (Other)
  Sender: FDA-Public Use
  Company Number: AT-PFM-2022-06253

PATIENT
  Age: 81 Year
  Sex: Male
  Weight: 92 kg

DRUGS (12)
  1. BRAFTOVI [Suspect]
     Active Substance: ENCORAFENIB
     Indication: Colorectal cancer
     Dosage: 300 MG PER DAY
     Route: 048
     Dates: start: 20220609, end: 20221230
  2. CETUXIMAB [Suspect]
     Active Substance: CETUXIMAB
     Indication: Colorectal cancer
     Dosage: 250 MG/M2, WEEKLY (LIQUID DILUTION)
     Route: 042
     Dates: start: 20220609, end: 20221128
  3. CETUXIMAB [Suspect]
     Active Substance: CETUXIMAB
     Dosage: 400 MG/M2, WEEKLY (LIQUID DILUTION)
     Route: 065
  4. CETUXIMAB [Suspect]
     Active Substance: CETUXIMAB
     Dosage: 500 MG/M2, WEEKLY (LIQUID DILUTION)
     Route: 065
     Dates: end: 20221226
  5. LOPERAMIDE HYDROCHLORIDE [Concomitant]
     Active Substance: LOPERAMIDE HYDROCHLORIDE
     Indication: Prophylaxis
     Dosage: 1 IU, PRN (AS NEEDED)
     Route: 048
  6. ZOFRAN [Concomitant]
     Active Substance: ONDANSETRON HYDROCHLORIDE
     Indication: Prophylaxis
     Dosage: 8 MG, BID (2/DAY)
     Route: 048
     Dates: start: 20220610
  7. DEXAMETHASONE [Concomitant]
     Active Substance: DEXAMETHASONE
     Indication: Prophylaxis
     Dosage: 8 MG, DAILY
     Route: 048
     Dates: start: 20220628
  8. BISOPROLOL FUMARATE [Concomitant]
     Active Substance: BISOPROLOL FUMARATE
     Indication: Prophylaxis
     Dosage: 2.5 MG, DAILY
     Route: 048
     Dates: start: 20140519
  9. ASPIRIN [Concomitant]
     Active Substance: ASPIRIN
     Indication: Prophylaxis
     Dosage: 100 MG, DAILY
     Route: 048
     Dates: start: 20140519
  10. HYDROCHLOROTHIAZIDE\LISINOPRIL [Concomitant]
     Active Substance: HYDROCHLOROTHIAZIDE\LISINOPRIL
     Indication: Prophylaxis
     Dosage: 25 MG, DAILY
     Route: 048
     Dates: start: 2019
  11. AMLODIPINE [Concomitant]
     Active Substance: AMLODIPINE BESYLATE
     Indication: Hypertension
     Dosage: 5 MG, DAILY
     Route: 048
     Dates: start: 20210820
  12. GLUCOSE-1-PHOSPHAT [Concomitant]
     Indication: Hypophosphataemia
     Dosage: 1 IU, DAILY, AMPOULE
     Route: 048
     Dates: start: 20210820, end: 20210831

REACTIONS (2)
  - Pollakiuria [Recovering/Resolving]
  - Dermatitis acneiform [Not Recovered/Not Resolved]

NARRATIVE: CASE EVENT DATE: 20220623
